FAERS Safety Report 15287875 (Version 5)
Quarter: 2018Q4

REPORT INFORMATION
  Report Type: Spontaneous
  Country: US (occurrence: US)
  Receive Date: 20180817
  Receipt Date: 20181106
  Transmission Date: 20190204
  Serious: No
  Sender: FDA-Public Use
  Company Number: US-PFIZER INC-2018323122

PATIENT
  Age: 57 Year
  Sex: Male

DRUGS (1)
  1. MIDAZOLAM [Suspect]
     Active Substance: MIDAZOLAM HYDROCHLORIDE
     Indication: SEDATION
     Dosage: 1 ML, UNK
     Route: 042

REACTIONS (3)
  - Poor quality product administered [Unknown]
  - Suspected product tampering [Unknown]
  - Drug ineffective [Unknown]

NARRATIVE: CASE EVENT DATE: 201808
